FAERS Safety Report 11875569 (Version 1)
Quarter: 2015Q4

REPORT INFORMATION
  Report Type: Spontaneous
  Country: FR (occurrence: FR)
  Receive Date: 20151229
  Receipt Date: 20151229
  Transmission Date: 20160305
  Serious: Yes (Hospitalization)
  Sender: FDA-Public Use
  Company Number: PHHY2015FR166812

PATIENT
  Age: 67 Year
  Sex: Male

DRUGS (15)
  1. NEOSTIGMINE [Suspect]
     Active Substance: NEOSTIGMINE
     Indication: SURGERY
     Route: 065
     Dates: start: 20151022, end: 20151022
  2. CONTRAMAL [Suspect]
     Active Substance: TRAMADOL HYDROCHLORIDE
     Indication: PRODUCT USED FOR UNKNOWN INDICATION
     Route: 065
     Dates: start: 20151022, end: 20151023
  3. PROPOPHOL [Suspect]
     Active Substance: PROPOFOL
     Indication: SURGERY
     Route: 065
     Dates: start: 20151022, end: 20151022
  4. ATRACURIUM HOSPIRA [Suspect]
     Active Substance: ATRACURIUM
     Indication: SURGERY
     Route: 065
     Dates: start: 20151022, end: 20151022
  5. EPHEDRINE AGUETTANT [Suspect]
     Active Substance: EPHEDRINE
     Indication: SURGERY
     Route: 065
     Dates: start: 20151022, end: 20151022
  6. ATROPINE AGUETTANT [Suspect]
     Active Substance: ATROPINE
     Indication: SURGERY
     Route: 065
     Dates: start: 20151022, end: 20151022
  7. SUFENTANIL [Suspect]
     Active Substance: SUFENTANIL
     Indication: SURGERY
     Route: 065
     Dates: start: 20151022, end: 20151022
  8. DEXAMETHASONE MERCK//DEXAMETHASONE ACETATE [Suspect]
     Active Substance: DEXAMETHASONE
     Indication: SURGERY
     Route: 065
     Dates: start: 20151022, end: 20151022
  9. ACUPAN [Suspect]
     Active Substance: NEFOPAM HYDROCHLORIDE
     Indication: PRODUCT USED FOR UNKNOWN INDICATION
     Route: 065
     Dates: start: 20151022, end: 20151022
  10. XYLOCAINE [Suspect]
     Active Substance: LIDOCAINE HYDROCHLORIDE
     Indication: SURGERY
     Route: 065
     Dates: start: 20151022, end: 20151022
  11. AMOXICILLIN CLAVULANIC ACID SANDOZ [Suspect]
     Active Substance: AMOXICILLIN\CLAVULANIC ACID
     Indication: ANTIBIOTIC PROPHYLAXIS
     Route: 042
     Dates: start: 20151022, end: 20151022
  12. KETAMINE PANPHARMA [Suspect]
     Active Substance: KETAMINE
     Indication: SURGERY
     Route: 065
     Dates: start: 20151022, end: 20151022
  13. AMOXICILLIN SANDOZ [Suspect]
     Active Substance: AMOXICILLIN
     Indication: PRODUCT USED FOR UNKNOWN INDICATION
     Route: 042
     Dates: start: 20151022, end: 20151023
  14. SEVOFLURANE BAXTER [Suspect]
     Active Substance: SEVOFLURANE
     Indication: SURGERY
     Route: 065
     Dates: start: 20151022, end: 20151022
  15. DROLEPTAN [Suspect]
     Active Substance: DROPERIDOL
     Indication: SURGERY
     Route: 065
     Dates: start: 20151022, end: 20151022

REACTIONS (4)
  - Rash pustular [Unknown]
  - Fistula [Unknown]
  - Renal failure [Recovered/Resolved]
  - Abscess [None]

NARRATIVE: CASE EVENT DATE: 20151023
